FAERS Safety Report 9338306 (Version 2)
Quarter: 2013Q3

REPORT INFORMATION
  Report Type: Spontaneous
  Country: US (occurrence: US)
  Receive Date: 20130610
  Receipt Date: 20130725
  Transmission Date: 20140515
  Serious: No
  Sender: FDA-Public Use
  Company Number: US-PFIZER INC-2013172203

PATIENT
  Age: 65 Year
  Sex: Female

DRUGS (11)
  1. XELJANZ [Suspect]
     Indication: RHEUMATOID ARTHRITIS
     Dosage: 5 MG, 2X/DAY
     Route: 048
     Dates: start: 20130515
  2. ATENOLOL [Concomitant]
     Dosage: UNK
  3. ETODOLAC [Concomitant]
     Dosage: UNK
  4. GABAPENTIN [Concomitant]
     Dosage: UNK
  5. HYDROXYCHLOROQUINE [Concomitant]
     Dosage: UNK
  6. METHOTREXATE [Concomitant]
     Dosage: UNK
  7. OMEPRAZOLE [Concomitant]
     Dosage: UNK
  8. KCL [Concomitant]
     Dosage: UNK
  9. TORASEMIDE [Concomitant]
     Dosage: UNK
  10. VALSARTAN [Concomitant]
     Dosage: UNK
  11. HYDROCHLOROTHIAZIDE [Concomitant]
     Dosage: UNK

REACTIONS (3)
  - Paranasal sinus hypersecretion [Unknown]
  - Productive cough [Unknown]
  - Vulvovaginal pruritus [Unknown]
